FAERS Safety Report 17703867 (Version 3)
Quarter: 2021Q1

REPORT INFORMATION
  Report Type: Report from Study
  Country: IT (occurrence: IT)
  Receive Date: 20200424
  Receipt Date: 20210124
  Transmission Date: 20210419
  Serious: Yes (Death)
  Sender: FDA-Public Use
  Company Number: IT-ROCHE-2586251

PATIENT
  Age: 80 Year
  Sex: Female
  Weight: 65 kg

DRUGS (10)
  1. ATEZOLIZUMAB. [Suspect]
     Active Substance: ATEZOLIZUMAB
     Indication: HEPATOCELLULAR CARCINOMA
     Route: 041
     Dates: start: 20200403, end: 20200412
  2. XL184 [Suspect]
     Active Substance: CABOZANTINIB
     Indication: HEPATOCELLULAR CARCINOMA
     Dosage: ON 11/APR/2020, THE PATIENT RECEIVED THE MOST RECENT DOSE OF CABOZANTINIB PRIOR TO THE EVENT ONSET.
     Route: 048
     Dates: start: 20200402, end: 20200412
  3. PAROXETINE. [Concomitant]
     Active Substance: PAROXETINE
  4. DIBASE [Concomitant]
     Active Substance: CHOLECALCIFEROL
  5. PLASIL [Concomitant]
     Active Substance: METOCLOPRAMIDE HYDROCHLORIDE
  6. ESIDREX [Concomitant]
     Active Substance: HYDROCHLOROTHIAZIDE
  7. TACHIDOL [Concomitant]
     Active Substance: ACETAMINOPHEN\CODEINE PHOSPHATE
  8. KARVEA [Concomitant]
     Active Substance: IRBESARTAN
  9. TRELEGY ELLIPTA [Concomitant]
     Active Substance: FLUTICASONE FUROATE\UMECLIDINIUM BROMIDE\VILANTEROL TRIFENATATE
  10. ZOFRAN [Concomitant]
     Active Substance: ONDANSETRON HYDROCHLORIDE

REACTIONS (1)
  - Embolism [Fatal]

NARRATIVE: CASE EVENT DATE: 20200412
